FAERS Safety Report 5190815-7 (Version None)
Quarter: 2006Q4

REPORT INFORMATION
  Report Type: 
  Country: None (occurrence: None)
  Receive Date: 20061215
  Receipt Date: 20061201
  Transmission Date: 20070319
  Serious: Yes (Hospitalization)
  Sender: FDA-Public Use
  Company Number: S06-ITA-05175-01

PATIENT
  Age: 81 Year
  Sex: Male

DRUGS (7)
  1. CITALOPRAM HYDROBROMIDE [Suspect]
     Indication: DEPRESSION
     Dosage: 5 DROPS QD PO
     Route: 048
     Dates: start: 20061109, end: 20061124
  2. GLICLAZIDE [Concomitant]
  3. KARVEZIDE [Concomitant]
  4. NIFEDIPINE [Concomitant]
  5. FINASTID (FINASTERIDE) [Concomitant]
  6. TICLOPIDINE [Concomitant]
  7. TORVAST (ATORVASTATIN CALCIUM) [Concomitant]

REACTIONS (3)
  - CONFUSIONAL STATE [None]
  - CREATININE RENAL CLEARANCE DECREASED [None]
  - HYPONATRAEMIC SYNDROME [None]
